FAERS Safety Report 16253362 (Version 2)
Quarter: 2019Q2

REPORT INFORMATION
  Report Type: Report from Study
  Country: None (occurrence: HU)
  Receive Date: 20190429
  Receipt Date: 20190508
  Transmission Date: 20190711
  Serious: Yes (Hospitalization, Other)
  Sender: FDA-Public Use
  Company Number: HU-ABBVIE-19S-076-2759935-00

PATIENT
  Age: 66 Year
  Sex: Female

DRUGS (7)
  1. XANAX [Concomitant]
     Active Substance: ALPRAZOLAM
     Indication: PRODUCT USED FOR UNKNOWN INDICATION
     Dosage: 1 TABLET IN THE MORNING
     Route: 048
  2. ESCITALOPRAM SCIPPA [Concomitant]
     Indication: DEPRESSION
     Dosage: 1 TABLET IN THE EVENING
     Route: 048
  3. MIRTAZAPINE ORION [Concomitant]
     Indication: DEPRESSION
     Dosage: 1 TABLET IN THE EVENING
     Route: 048
  4. STALEVO [Concomitant]
     Active Substance: CARBIDOPA\ENTACAPONE\LEVODOPA
     Indication: PARKINSON^S DISEASE
     Dosage: 50/12.5/200 MG, AT 9PM
     Route: 048
  5. MADOPAR HBS [Concomitant]
     Active Substance: BENSERAZIDE HYDROCHLORIDE\LEVODOPA
     Indication: PARKINSON^S DISEASE
     Dosage: 100 MG /25 MG,?1 TABLET IN THE MORNING
     Route: 048
  6. DUODOPA [Suspect]
     Active Substance: CARBIDOPA\LEVODOPA
     Indication: PARKINSON^S DISEASE
     Dosage: MD 3 ML; CD2.4 ML/H; ED1.5 ML, ?DRUG SUSPENDED
     Route: 050
     Dates: start: 20190403, end: 20190420
  7. DUODOPA [Suspect]
     Active Substance: CARBIDOPA\LEVODOPA
     Route: 050
     Dates: start: 20190503

REACTIONS (3)
  - Nausea [Recovered/Resolved]
  - Vomiting [Recovered/Resolved]
  - Device dislocation [Recovered/Resolved]

NARRATIVE: CASE EVENT DATE: 201904
